FAERS Safety Report 9311273 (Version 2)
Quarter: 2014Q1

REPORT INFORMATION
  Report Type: Spontaneous
  Country: US (occurrence: US)
  Receive Date: 20130528
  Receipt Date: 20140226
  Transmission Date: 20141002
  Serious: Yes (Congenital Anomaly, Other)
  Sender: FDA-Public Use
  Company Number: US-PFIZER INC-2013159479

PATIENT
  Sex: Male

DRUGS (12)
  1. ZOLOFT [Suspect]
     Indication: DEPRESSION
     Dosage: 100 MG, UNK
     Route: 064
     Dates: start: 1995, end: 200206
  2. ZOLOFT [Suspect]
     Indication: ANXIETY
     Dosage: 75 MG, UNK
     Route: 064
     Dates: start: 200207, end: 20050125
  3. ZOLOFT [Suspect]
     Dosage: 100 MG, UNK
     Route: 064
     Dates: start: 20050125, end: 20050730
  4. IRON [Concomitant]
     Dosage: UNK
     Route: 064
  5. PRENATAL VITAMINS [Concomitant]
     Indication: PREGNANCY
     Dosage: UNK
     Route: 064
     Dates: start: 2004, end: 2005
  6. ZOFRAN [Concomitant]
     Indication: NAUSEA
     Dosage: UNK
     Route: 064
     Dates: start: 20041213
  7. ZOFRAN [Concomitant]
     Indication: VOMITING
  8. KAOPECTATE [Concomitant]
     Indication: MUSCLE SPASMS
     Dosage: UNK
     Route: 064
     Dates: start: 20041213
  9. B-6 [Concomitant]
     Dosage: UNK
     Route: 064
     Dates: start: 20041214
  10. UNISOM [Concomitant]
     Dosage: UNK
     Route: 064
     Dates: start: 20041214
  11. ZANTAC [Concomitant]
     Dosage: UNK
     Route: 064
     Dates: start: 20041215
  12. TYLENOL [Concomitant]
     Indication: BACK PAIN
     Dosage: UNK
     Route: 064
     Dates: start: 20050523

REACTIONS (5)
  - Maternal exposure during pregnancy [Unknown]
  - Right atrial dilatation [Unknown]
  - Atrial septal defect [Unknown]
  - Congenital anomaly [Unknown]
  - Dilatation ventricular [Unknown]
